FAERS Safety Report 24032617 (Version 2)
Quarter: 2024Q3

REPORT INFORMATION
  Report Type: Spontaneous
  Country: DE (occurrence: DE)
  Receive Date: 20240701
  Receipt Date: 20240728
  Transmission Date: 20241017
  Serious: Yes (Hospitalization, Other)
  Sender: BRISTOL MYERS SQUIBB
  Company Number: DE-BRISTOL-MYERS SQUIBB COMPANY-2024-103657

PATIENT
  Age: 38 Year
  Sex: Female
  Weight: 65 kg

DRUGS (5)
  1. ORENCIA [Suspect]
     Active Substance: ABATACEPT
     Indication: Lung disorder
     Dosage: FREQUENCY: ONCE WEEKLY
     Route: 058
     Dates: start: 20231015, end: 20240205
  2. ORENCIA [Suspect]
     Active Substance: ABATACEPT
     Indication: Immunodeficiency
     Dosage: DOSE : 125 MG PRE-FILLED INJECTION;     FREQ : ONCE A WEEK
  3. ROSUVASTATIN [Concomitant]
     Active Substance: ROSUVASTATIN\ROSUVASTATIN CALCIUM
     Indication: Product used for unknown indication
     Dosage: A LOW DOSE OF ROSUVASTATIN 5 MG A DAY
     Route: 048
  4. IMMUNE GLOBULIN NOS [Concomitant]
     Active Substance: IMMUNE GLOBULIN NOS
     Indication: Immunodeficiency
     Dosage: NEUROLEPTICS-HAS BEEN RECEIVING GAMMA GLOBULIN REPLACEMENT FOR THE PAST 10 YEARS
  5. IMMUNE GLOBULIN NOS [Concomitant]
     Active Substance: IMMUNE GLOBULIN NOS
     Indication: Hypogammaglobulinaemia

REACTIONS (3)
  - Hepatitis toxic [Recovered/Resolved]
  - Pneumonia [Recovered/Resolved]
  - Off label use [Unknown]

NARRATIVE: CASE EVENT DATE: 20240229
